FAERS Safety Report 25583725 (Version 2)
Quarter: 2025Q3

REPORT INFORMATION
  Report Type: Spontaneous
  Country: US (occurrence: US)
  Receive Date: 20250721
  Receipt Date: 20250828
  Transmission Date: 20251020
  Serious: No
  Sender: HETERO
  Company Number: US-HETERO-HET2025US04161

PATIENT
  Sex: Male
  Weight: 16.327 kg

DRUGS (1)
  1. SAPROPTERIN [Suspect]
     Active Substance: SAPROPTERIN
     Indication: Phenylketonuria
     Route: 048
     Dates: start: 20250619, end: 20250629

REACTIONS (3)
  - Amino acid level increased [Unknown]
  - Product colour issue [Unknown]
  - Drug ineffective [Unknown]
